FAERS Safety Report 7794910-5 (Version None)
Quarter: 2011Q4

REPORT INFORMATION
  Report Type: 
  Country: None (occurrence: None)
  Receive Date: 20111004
  Receipt Date: 20110927
  Transmission Date: 20120403
  Serious: Yes (Other)
  Sender: FDA-Public Use
  Company Number: PHEH2011US03298

PATIENT
  Sex: Male

DRUGS (8)
  1. XANAX [Concomitant]
     Dosage: UNK UKN, UNK
  2. SIMVASTATIN [Concomitant]
     Dosage: 80 MG, QD
  3. CYMBALTA [Suspect]
     Dosage: 30 MG, QD
  4. PRISTIQ [Suspect]
  5. FOCALIN XR [Suspect]
     Indication: CROHN'S DISEASE
     Dosage: 10 MG, QD
  6. FOCALIN XR [Suspect]
     Dosage: 5 MG, UNK
  7. CATAPRES-TTS-2 [Concomitant]
     Dosage: UNK
  8. METOPROLOL SUCCINATE [Concomitant]
     Dosage: 25 MG, QD

REACTIONS (5)
  - DIZZINESS [None]
  - FEELING ABNORMAL [None]
  - BLOOD PRESSURE INCREASED [None]
  - HEART RATE INCREASED [None]
  - WRONG TECHNIQUE IN DRUG USAGE PROCESS [None]
